FAERS Safety Report 6873199-5 (Version None)
Quarter: 2010Q3

REPORT INFORMATION
  Report Type: 
  Country: None (occurrence: None)
  Receive Date: 20100723
  Receipt Date: 20081223
  Transmission Date: 20110219
  Serious: No
  Sender: FDA-Public Use
  Company Number: US-PFIZER INC-2008159729

PATIENT
  Age: 35 Year
  Sex: Female
  Weight: 58.967 kg

DRUGS (2)
  1. CHANTIX [Suspect]
     Indication: SMOKING CESSATION THERAPY
     Dates: start: 20081001, end: 20081001
  2. ACETYLSALICYLIC ACID [Concomitant]
     Dosage: UNK

REACTIONS (5)
  - AGITATION [None]
  - FEELING ABNORMAL [None]
  - MOOD ALTERED [None]
  - NIGHTMARE [None]
  - TOBACCO USER [None]
